FAERS Safety Report 6741003-1 (Version None)
Quarter: 2010Q2

REPORT INFORMATION
  Report Type: 
  Country: None (occurrence: None)
  Receive Date: 20100526
  Receipt Date: 20100517
  Transmission Date: 20101027
  Serious: Yes (Other)
  Sender: FDA-Public Use
  Company Number: GB-ASTRAZENECA-2010SE22374

PATIENT
  Age: 40 Year
  Sex: Male
  Weight: 76.2 kg

DRUGS (5)
  1. ESOMEPRAZOLE MAGNESIUM [Suspect]
     Indication: DYSPEPSIA
     Route: 048
     Dates: start: 20100315, end: 20100329
  2. ESOMEPRAZOLE MAGNESIUM [Suspect]
     Indication: HICCUPS
     Route: 048
     Dates: start: 20100315, end: 20100329
  3. CHLORPROMAZINE [Concomitant]
     Indication: HICCUPS
     Route: 048
     Dates: start: 20100315, end: 20100319
  4. GAVISCON [Concomitant]
  5. OMEPRAZOLE [Concomitant]
     Route: 048

REACTIONS (3)
  - BLOOD BILIRUBIN INCREASED [None]
  - HEPATITIS [None]
  - JAUNDICE HEPATOCELLULAR [None]
